FAERS Safety Report 14705687 (Version 1)
Quarter: 2018Q2

REPORT INFORMATION
  Report Type: Spontaneous
  Country: ES (occurrence: ES)
  Receive Date: 20180402
  Receipt Date: 20180402
  Transmission Date: 20180711
  Serious: Yes (Hospitalization)
  Sender: FDA-Public Use
  Company Number: ES-TEVA-2018-ES-874413

PATIENT
  Age: 56 Year
  Sex: Male

DRUGS (3)
  1. ALOPURINOL (318A) [Suspect]
     Active Substance: ALLOPURINOL
     Indication: GOUT
     Dosage: UNKNOWN (DOES NOT REMEMBER THE DOSE)
     Route: 048
  2. ESOMEPRAZOL (1172A) [Concomitant]
     Indication: ABDOMINAL PAIN UPPER
     Dosage: 1 / DAY
     Route: 048
     Dates: start: 20170901, end: 20180125
  3. OLMESARTAN [Concomitant]
     Active Substance: OLMESARTAN
     Indication: HYPERTENSION
     Dosage: 1 / DAY
     Route: 048
     Dates: start: 20170901, end: 20180208

REACTIONS (1)
  - Histiocytosis haematophagic [Recovering/Resolving]

NARRATIVE: CASE EVENT DATE: 20170124
